FAERS Safety Report 20588948 (Version 3)
Quarter: 2023Q1

REPORT INFORMATION
  Report Type: Spontaneous
  Country: NL (occurrence: NL)
  Receive Date: 20220314
  Receipt Date: 20230109
  Transmission Date: 20230418
  Serious: Yes (Hospitalization)
  Sender: FDA-Public Use
  Company Number: NL-PFIZER INC-202101352796

PATIENT
  Age: 20 Year
  Sex: Male

DRUGS (2)
  1. PREGABALIN [Suspect]
     Active Substance: PREGABALIN
     Indication: Product used for unknown indication
     Dosage: 2700 MG (IN A SPAN OF 4 HRS)/(DOSE (MGKG-1)/37.0)
     Route: 065
  2. PREGABALIN [Suspect]
     Active Substance: PREGABALIN
     Dosage: 37 MG/KG
     Route: 065

REACTIONS (4)
  - Hyperthermia [Unknown]
  - Hypertension [Unknown]
  - Somnolence [Unknown]
  - Intentional overdose [Unknown]
